FAERS Safety Report 6988411-1 (Version None)
Quarter: 2010Q3

REPORT INFORMATION
  Report Type: 
  Country: None (occurrence: None)
  Receive Date: 20100914
  Receipt Date: 20100830
  Transmission Date: 20110219
  Serious: Yes (Other)
  Sender: FDA-Public Use
  Company Number: APP201000737

PATIENT
  Age: 24 Year
  Sex: Female

DRUGS (2)
  1. AMPICILLIN [Suspect]
     Indication: ANTIBIOTIC PROPHYLAXIS
     Dosage: 2 GM, 1 IN 6 HR, INTRAVENOUS
     Route: 042
  2. BENTHAZINE PENICILLIN G [Concomitant]

REACTIONS (4)
  - CAESAREAN SECTION [None]
  - DRUG EXPOSURE DURING PREGNANCY [None]
  - JARISCH-HERXHEIMER REACTION [None]
  - SECONDARY SYPHILIS [None]
